FAERS Safety Report 8063040-X (Version None)
Quarter: 2012Q1

REPORT INFORMATION
  Report Type: 
  Country: None (occurrence: None)
  Receive Date: 20120123
  Receipt Date: 20120119
  Transmission Date: 20120608
  Serious: Yes (Life-Threatening, Hospitalization, Other)
  Sender: FDA-Public Use
  Company Number: GB-BAYER-2012-006273

PATIENT
  Age: 66 Year
  Sex: Male

DRUGS (3)
  1. NAPROXEN SODIUM [Suspect]
     Indication: GOUT
     Dosage: UNK
     Route: 048
     Dates: start: 20111230, end: 20120102
  2. COLCHICIN [Concomitant]
     Indication: GOUT
     Dosage: DAILY DOSE 500 ?G
     Dates: start: 20111229, end: 20120102
  3. SIMVASTATIN [Concomitant]
     Indication: BLOOD CHOLESTEROL INCREASED
     Dosage: 40 MG, QD
     Dates: start: 20100101, end: 20120102

REACTIONS (3)
  - GASTROINTESTINAL HAEMORRHAGE [None]
  - RECTAL HAEMORRHAGE [None]
  - HAEMORRHAGIC ANAEMIA [None]
